FAERS Safety Report 8134136-9 (Version None)
Quarter: 2012Q1

REPORT INFORMATION
  Report Type: 
  Country: None (occurrence: None)
  Receive Date: 20120208
  Receipt Date: 20120127
  Transmission Date: 20120608
  Serious: Yes (Hospitalization, Other)
  Sender: FDA-Public Use
  Company Number: DSJ-2011-21233

PATIENT
  Age: 8 Decade
  Sex: Female

DRUGS (8)
  1. ACETYLSALICYLIC ACID/ISOSORBIDE [Concomitant]
  2. BENICAR HCT [Suspect]
     Indication: HYPERTENSION
     Dosage: SEE IMAGE
     Route: 048
     Dates: end: 20120101
  3. BENICAR HCT [Suspect]
     Indication: HYPERTENSION
     Dosage: SEE IMAGE
     Route: 048
     Dates: start: 20090101, end: 20110801
  4. BENICAR HCT [Suspect]
     Indication: HYPERTENSION
     Dosage: SEE IMAGE
     Route: 048
     Dates: start: 20110101
  5. BENICAR HCT [Suspect]
     Indication: HYPERTENSION
     Dosage: SEE IMAGE
     Route: 048
     Dates: start: 20110801, end: 20110101
  6. BENICAR HCT [Suspect]
     Indication: HYPERTENSION
     Dosage: SEE IMAGE
     Route: 048
     Dates: start: 20120101
  7. MEDCINE FOR CARDIAC DISORDER (NAME UNKNOWN) [Concomitant]
  8. ALISKIREN/HYDROCHLOROTHIAZIDE (ALISKIREN AND HYDROCHLOROTHIAZIDE) (ALI [Concomitant]

REACTIONS (9)
  - DRUG ADMINISTRATION ERROR [None]
  - HEADACHE [None]
  - ARRHYTHMIA [None]
  - INSOMNIA [None]
  - BLOOD PRESSURE INCREASED [None]
  - OVERDOSE [None]
  - DRUG INEFFECTIVE [None]
  - VISUAL IMPAIRMENT [None]
  - ECONOMIC PROBLEM [None]
